FAERS Safety Report 9174901 (Version 3)
Quarter: 2013Q2

REPORT INFORMATION
  Report Type: Spontaneous
  Country: JP (occurrence: JP)
  Receive Date: 20130320
  Receipt Date: 20130502
  Transmission Date: 20140414
  Serious: Yes (Hospitalization, Other)
  Sender: FDA-Public Use
  Company Number: JP-009507513-1303JPN007771

PATIENT
  Age: 47 Year
  Sex: Male
  Weight: 53 kg

DRUGS (5)
  1. PEGINTRON [Suspect]
     Indication: CHRONIC HEPATITIS C
     Dosage: 80 MICROGRAM, QW
     Route: 058
     Dates: start: 20100603
  2. REBETOL [Suspect]
     Indication: CHRONIC HEPATITIS C
     Dosage: 400 MG, BID
     Route: 048
     Dates: start: 20100603, end: 20111116
  3. LOCHOL (FLUVASTATIN SODIUM) [Suspect]
     Indication: HEPATITIS C
     Dosage: 20 MG, QD
     Route: 048
     Dates: start: 20100603, end: 20111116
  4. TALION (BEPOTASTINE BESYLATE) [Suspect]
     Dosage: 10 MG, BID
     Route: 048
     Dates: start: 20110210, end: 20111116
  5. LOXONIN [Suspect]
     Dosage: DAILY DOSE UNKNONWN AS NEEDED USE
     Route: 048
     Dates: start: 20100603, end: 20101028

REACTIONS (3)
  - Skin necrosis [Recovering/Resolving]
  - Injection site cellulitis [Recovering/Resolving]
  - Skin ulcer [Recovered/Resolved]
